FAERS Safety Report 9190832 (Version 1)
Quarter: 2013Q1

REPORT INFORMATION
  Report Type: Spontaneous
  Country: US (occurrence: US)
  Receive Date: 20130326
  Receipt Date: 20130326
  Transmission Date: 20140127
  Serious: Yes (Other)
  Sender: FDA-Public Use
  Company Number: US-GLAXOSMITHKLINE-A1016549A

PATIENT
  Age: 19 Year
  Sex: Male

DRUGS (2)
  1. LAMOTRIGINE [Suspect]
     Indication: EPILEPSY
     Dosage: 100MG TWICE PER DAY
     Route: 048
     Dates: start: 2003, end: 2003
  2. LAMICTAL [Concomitant]

REACTIONS (3)
  - Convulsion [Recovered/Resolved]
  - Scar [Recovered/Resolved]
  - Tooth fracture [Recovered/Resolved]
